FAERS Safety Report 20789543 (Version 2)
Quarter: 2022Q2

REPORT INFORMATION
  Report Type: Spontaneous
  Country: US (occurrence: US)
  Receive Date: 20220505
  Receipt Date: 20220609
  Transmission Date: 20220721
  Serious: No
  Sender: FDA-Public Use
  Company Number: US-PFIZER INC-202200555913

PATIENT
  Age: 12 Year
  Sex: Female
  Weight: 36.29 kg

DRUGS (2)
  1. GENOTROPIN [Suspect]
     Active Substance: SOMATROPIN
     Indication: Growth disorder
     Dosage: 1.4 MG, 1X/DAY (1.4MG INJECTION ONCE A DAY)
     Dates: start: 202003
  2. GENOTROPIN [Suspect]
     Active Substance: SOMATROPIN
     Indication: Short stature

REACTIONS (3)
  - Drug dose omission by device [Unknown]
  - Product storage error [Recovered/Resolved]
  - Device information output issue [Recovered/Resolved]

NARRATIVE: CASE EVENT DATE: 20220408
